FAERS Safety Report 7830754-3 (Version None)
Quarter: 2011Q4

REPORT INFORMATION
  Report Type: 
  Country: None (occurrence: None)
  Receive Date: 20111021
  Receipt Date: 20111012
  Transmission Date: 20120403
  Serious: Yes (Hospitalization)
  Sender: FDA-Public Use
  Company Number: US-GLAXOSMITHKLINE-A0845021A

PATIENT
  Age: 75 Year
  Sex: Male
  Weight: 90.9 kg

DRUGS (6)
  1. TOPROL-XL [Concomitant]
  2. LANOXIN [Concomitant]
  3. NIASPAN [Concomitant]
  4. AVANDIA [Suspect]
     Indication: DIABETES MELLITUS
     Dosage: 8MG PER DAY
     Route: 048
     Dates: start: 20010117, end: 20040121
  5. GLUCOPHAGE [Concomitant]
  6. LIPITOR [Concomitant]

REACTIONS (6)
  - MYOCARDIAL INFARCTION [None]
  - PAIN [None]
  - CORONARY ARTERY DISEASE [None]
  - CHRONIC OBSTRUCTIVE PULMONARY DISEASE [None]
  - ARRHYTHMIA [None]
  - ACUTE CORONARY SYNDROME [None]
